FAERS Safety Report 9857960 (Version 1)
Quarter: 2014Q1

REPORT INFORMATION
  Report Type: Spontaneous
  Country: US (occurrence: US)
  Receive Date: 20140131
  Receipt Date: 20140131
  Transmission Date: 20141002
  Serious: No
  Sender: FDA-Public Use
  Company Number: US-PFIZER INC-2014028086

PATIENT
  Age: 61 Year
  Sex: Female
  Weight: 95.24 kg

DRUGS (1)
  1. DILANTIN [Suspect]
     Indication: CONVULSION
     Dosage: UNK

REACTIONS (1)
  - Drug ineffective [Unknown]
